FAERS Safety Report 6432562-7 (Version None)
Quarter: 2009Q4

REPORT INFORMATION
  Report Type: 
  Country: None (occurrence: None)
  Receive Date: 20091109
  Receipt Date: 20091028
  Transmission Date: 20100525
  Serious: Yes (Death)
  Sender: FDA-Public Use
  Company Number: ES-PFIZER INC-2009289550

PATIENT
  Age: 55 Year
  Sex: Male
  Weight: 91 kg

DRUGS (7)
  1. PEGVISOMANT [Suspect]
     Indication: ACROMEGALY
     Dosage: 30 MG, 1X/DAY
     Route: 058
     Dates: start: 20040706, end: 20081112
  2. METFORMIN [Concomitant]
     Dosage: 1700 MG, 1X/DAY
     Route: 048
     Dates: start: 20050115, end: 20081112
  3. ACETYLSALICYLIC ACID [Concomitant]
     Dosage: 100 MG, 1X/DAY
     Route: 048
     Dates: start: 20050515, end: 20081112
  4. ATORVASTATIN [Concomitant]
     Dosage: 20 MG, 1X/DAY
     Route: 048
     Dates: start: 20050515, end: 20081112
  5. TESTOSTERONE UNDECANOATE [Concomitant]
     Dosage: EVERY 3 MONTHS
     Route: 030
     Dates: start: 20080415, end: 20081112
  6. ENALAPRIL [Concomitant]
     Dosage: 20 MG, 1X/DAY
     Route: 048
     Dates: start: 20080415, end: 20081112
  7. BISOPROLOL FUMARATE AND HYDROCHLOROTHIAZIDE [Concomitant]
     Dosage: 1 TABLET, 1X/DAY
     Route: 048
     Dates: start: 20061015, end: 20081112

REACTIONS (1)
  - DEATH [None]
